FAERS Safety Report 7580601-2 (Version None)
Quarter: 2011Q2

REPORT INFORMATION
  Report Type: 
  Country: None (occurrence: None)
  Receive Date: 20110629
  Receipt Date: 20110620
  Transmission Date: 20111010
  Serious: Yes (Hospitalization)
  Sender: FDA-Public Use
  Company Number: B0728935A

PATIENT
  Sex: Female

DRUGS (1)
  1. LANOXIN [Suspect]
     Indication: ATRIAL FIBRILLATION
     Dosage: .5MG PER DAY
     Route: 065
     Dates: start: 20110616, end: 20110616

REACTIONS (2)
  - BRONCHOSPASM [None]
  - RESPIRATORY FAILURE [None]
